FAERS Safety Report 5823074-X (Version None)
Quarter: 2008Q3

REPORT INFORMATION
  Report Type: 
  Country: None (occurrence: None)
  Receive Date: 20080725
  Receipt Date: 20070703
  Transmission Date: 20090109
  Serious: Yes (Hospitalization)
  Sender: FDA-Public Use
  Company Number: US-AMGEN-US232506

PATIENT
  Sex: Male

DRUGS (8)
  1. PROCRIT [Suspect]
     Indication: RENAL FAILURE CHRONIC
     Route: 058
     Dates: start: 20070702
  2. WARFARIN SODIUM [Concomitant]
  3. DIOVAN [Concomitant]
  4. PROTONIX [Concomitant]
  5. MIRTAZAPINE [Concomitant]
  6. FUROSEMIDE [Concomitant]
  7. ATENOLOL [Concomitant]
  8. DILTIAZEM HCL [Concomitant]

REACTIONS (2)
  - BLOOD PRESSURE INCREASED [None]
  - CHEST PAIN [None]
